FAERS Safety Report 4672517-6 (Version None)
Quarter: 2005Q2

REPORT INFORMATION
  Report Type: 
  Country: None (occurrence: None)
  Receive Date: 20050524
  Receipt Date: 20050513
  Transmission Date: 20051028
  Serious: Yes (Congenital Anomaly, Other)
  Sender: FDA-Public Use
  Company Number: FR-BRISTOL-MYERS SQUIBB COMPANY-12967253

PATIENT
  Sex: Female

DRUGS (6)
  1. MITOMYCIN-C BULK POWDER [Suspect]
     Route: 064
  2. BLEOMYCIN [Suspect]
     Route: 064
  3. CYCLOPHOSPHAMIDE [Suspect]
     Route: 064
  4. ADRIAMYCIN PFS [Suspect]
     Route: 064
  5. FLUOROURACIL [Suspect]
     Route: 064
  6. SOLU-MEDROL [Suspect]
     Route: 064

REACTIONS (4)
  - ANAEMIA NEONATAL [None]
  - CONGENITAL ANOMALY [None]
  - PREGNANCY [None]
  - PREMATURE BABY [None]
